FAERS Safety Report 9250359 (Version 1)
Quarter: 2013Q1

REPORT INFORMATION
  Report Type: Spontaneous
  Country: US (occurrence: None)
  Receive Date: 20130305
  Receipt Date: 20130305
  Transmission Date: 20140127
  Serious: Yes (Other)
  Sender: FDA-Public Use
  Company Number: 163-21880-12040506

PATIENT
  Age: 74 Year
  Sex: Female

DRUGS (3)
  1. REVLIMID [Suspect]
     Indication: PLASMA CELL MYELOMA
     Dosage: 1  IN 1 D
     Route: 048
     Dates: start: 200906, end: 2009
  2. COUMADIN (WARFARIN SODIUM) [Suspect]
  3. DECADRON (DEXAMETHASONE) [Suspect]

REACTIONS (1)
  - Diarrhoea [None]
